FAERS Safety Report 9696092 (Version 2)
Quarter: 2014Q1

REPORT INFORMATION
  Report Type: Spontaneous
  Country: FR (occurrence: FR)
  Receive Date: 20131119
  Receipt Date: 20140326
  Transmission Date: 20141002
  Serious: Yes (Hospitalization)
  Sender: FDA-Public Use
  Company Number: FR-GLAXOSMITHKLINE-B0943150A

PATIENT
  Age: 52 Year
  Sex: Female

DRUGS (16)
  1. ZOPHREN [Suspect]
     Indication: PRODUCT USED FOR UNKNOWN INDICATION
     Route: 048
     Dates: start: 20130930, end: 201310
  2. LAMISIL [Suspect]
     Indication: ONYCHOMYCOSIS
     Dosage: 1UNIT PER DAY
     Route: 048
     Dates: start: 201309, end: 20131016
  3. CONTRAMAL [Suspect]
     Indication: PRODUCT USED FOR UNKNOWN INDICATION
     Route: 048
     Dates: start: 20130930, end: 201310
  4. IBUPROFENE [Suspect]
     Indication: PRODUCT USED FOR UNKNOWN INDICATION
     Route: 048
     Dates: start: 20131001, end: 20131002
  5. OMEPRAZOLE [Suspect]
     Indication: PRODUCT USED FOR UNKNOWN INDICATION
     Route: 048
     Dates: start: 20131001, end: 20131016
  6. PYOSTACINE [Suspect]
     Indication: PRODUCT USED FOR UNKNOWN INDICATION
     Route: 048
     Dates: start: 20131004, end: 20131007
  7. CYMBALTA [Concomitant]
  8. TOPALGIC (FRANCE) [Concomitant]
  9. PRINCI-B FORT [Concomitant]
  10. MOTILIUM [Concomitant]
  11. ISOPTINE [Concomitant]
  12. FORLAX [Concomitant]
  13. TRIATEC [Concomitant]
  14. KARDEGIC [Concomitant]
  15. SIMVASTATINE [Concomitant]
  16. ESIDREX [Concomitant]

REACTIONS (6)
  - Toxic skin eruption [Recovered/Resolved]
  - Rash erythematous [Recovered/Resolved]
  - Prurigo [Recovered/Resolved]
  - Rash maculo-papular [Recovered/Resolved]
  - Purpura [Recovered/Resolved]
  - Cheilitis [Recovered/Resolved]
